FAERS Safety Report 5670602-3 (Version None)
Quarter: 2008Q1

REPORT INFORMATION
  Report Type: 
  Country: None (occurrence: None)
  Receive Date: 20080314
  Receipt Date: 20080314
  Transmission Date: 20080703
  Serious: Yes (Life-Threatening)
  Sender: FDA-Public Use
  Company Number: None

PATIENT
  Age: 61 Year
  Sex: Female
  Weight: 72 kg

DRUGS (2)
  1. METHOTREXATE [Suspect]
     Indication: LYMPHOMA
     Dosage: 9 GM ONCE IV; 2.5 G ONCE INTRA-ARTERIAL
     Route: 042
     Dates: start: 20080117, end: 20080117
  2. METHOTREXATE [Suspect]
     Indication: LYMPHOMA
     Dosage: 9 GM ONCE IV; 2.5 G ONCE INTRA-ARTERIAL
     Route: 042
     Dates: start: 20080121, end: 20080121

REACTIONS (4)
  - BLOOD CREATINE PHOSPHOKINASE MB INCREASED [None]
  - ELECTROCARDIOGRAM ST SEGMENT ELEVATION [None]
  - TACHYCARDIA [None]
  - TROPONIN I INCREASED [None]
